FAERS Safety Report 8086001-3 (Version None)
Quarter: 2012Q1

REPORT INFORMATION
  Report Type: 
  Country: None (occurrence: None)
  Receive Date: 20120128
  Receipt Date: 20110608
  Transmission Date: 20120608
  Serious: No
  Sender: FDA-Public Use
  Company Number: US-ABBOTT-11P-163-0731381-00

PATIENT
  Sex: Female
  Weight: 63.56 kg

DRUGS (4)
  1. NASONEX [Concomitant]
     Indication: SEASONAL ALLERGY
  2. HUMIRA [Suspect]
     Indication: CROHN'S DISEASE
     Dates: start: 20100801, end: 20110601
  3. EYE DROPS [Concomitant]
     Indication: SEASONAL ALLERGY
  4. HUMIRA [Suspect]
     Indication: RHEUMATOID ARTHRITIS
     Dates: start: 20110601

REACTIONS (5)
  - JOINT SWELLING [None]
  - RHEUMATOID ARTHRITIS [None]
  - INJECTION SITE PAIN [None]
  - ABDOMINAL PAIN [None]
  - CROHN'S DISEASE [None]
